FAERS Safety Report 10101234 (Version 1)
Quarter: 2014Q2

REPORT INFORMATION
  Report Type: Spontaneous
  Country: US (occurrence: US)
  Receive Date: 20140424
  Receipt Date: 20140424
  Transmission Date: 20141212
  Serious: Yes (Death, Hospitalization, Other)
  Sender: FDA-Public Use
  Company Number: US-009507513-1404USA010445

PATIENT
  Sex: Male

DRUGS (1)
  1. TEMODAR [Suspect]
     Indication: BRAIN NEOPLASM MALIGNANT
     Dosage: 100 MG, ONCE DAILY, FIVE DAYS A WEEK
     Route: 048
     Dates: start: 20140204

REACTIONS (2)
  - Brain neoplasm malignant [Fatal]
  - Adverse event [Unknown]
